FAERS Safety Report 18956004 (Version 1)
Quarter: 2021Q1

REPORT INFORMATION
  Report Type: Report from Study
  Country: None (occurrence: US)
  Receive Date: 20210302
  Receipt Date: 20210302
  Transmission Date: 20210420
  Serious: Yes (Hospitalization)
  Sender: FDA-Public Use
  Company Number: US-ABBVIE-21K-163-3790522-00

PATIENT
  Age: 59 Year
  Sex: Male

DRUGS (1)
  1. VENCLEXTA [Suspect]
     Active Substance: VENETOCLAX
     Indication: WALDENSTROM^S MACROGLOBULINAEMIA
     Dosage: 8 TABLET(S) BY MOUTH EVERY DAY AS DIRECTED
     Route: 048

REACTIONS (3)
  - Transfusion [Recovered/Resolved]
  - Condition aggravated [Unknown]
  - Transfusion [Unknown]

NARRATIVE: CASE EVENT DATE: 20210222
